FAERS Safety Report 9337401 (Version 3)
Quarter: 2013Q2

REPORT INFORMATION
  Report Type: Spontaneous
  Country: US (occurrence: US)
  Receive Date: 20130607
  Receipt Date: 20130618
  Transmission Date: 20140414
  Serious: Yes (Other)
  Sender: FDA-Public Use
  Company Number: US-AMGEN-USASP2013038555

PATIENT
  Age: 70 Year
  Sex: Female
  Weight: 63.2 kg

DRUGS (1)
  1. PROLIA [Suspect]
     Indication: SENILE OSTEOPOROSIS
     Dosage: 60 MG, Q6MO
     Route: 058
     Dates: start: 20121130

REACTIONS (11)
  - Dyspnoea [Recovering/Resolving]
  - Muscle spasms [Recovering/Resolving]
  - Feeling abnormal [Unknown]
  - Dysphagia [Unknown]
  - Hypoaesthesia [Unknown]
  - Back pain [Unknown]
  - Rash [Recovering/Resolving]
  - Skin infection [Unknown]
  - Influenza like illness [Recovering/Resolving]
  - Pain [Recovering/Resolving]
  - Bone pain [Recovering/Resolving]
